FAERS Safety Report 4574163-1 (Version None)
Quarter: 2005Q1

REPORT INFORMATION
  Report Type: 
  Country: None (occurrence: None)
  Receive Date: 20050208
  Receipt Date: 20041101
  Transmission Date: 20050727
  Serious: No
  Sender: FDA-Public Use
  Company Number: US-GLAXOSMITHKLINE-A0532512A

PATIENT

DRUGS (1)
  1. PAXIL [Suspect]

REACTIONS (5)
  - APATHY [None]
  - DRUG WITHDRAWAL SYNDROME [None]
  - HYPERSOMNIA [None]
  - LETHARGY [None]
  - SEXUAL DYSFUNCTION [None]
